FAERS Safety Report 13022437 (Version 2)
Quarter: 2016Q4

REPORT INFORMATION
  Report Type: Report from Study
  Country: JP (occurrence: JP)
  Receive Date: 20161213
  Receipt Date: 20161228
  Transmission Date: 20170207
  Serious: Yes (Hospitalization, Other)
  Sender: FDA-Public Use
  Company Number: JP-MYLANLABS-2016M1054335

PATIENT

DRUGS (44)
  1. CLOZAPINE. [Suspect]
     Active Substance: CLOZAPINE
     Dosage: 400 MG, QD
     Route: 048
     Dates: start: 20130808
  2. QUETIAPINE. [Concomitant]
     Active Substance: QUETIAPINE
     Dosage: 100 MG, QD
     Route: 048
     Dates: start: 20130417, end: 20130418
  3. QUETIAPINE. [Concomitant]
     Active Substance: QUETIAPINE
     Dosage: 50 MG, QD
     Route: 048
     Dates: start: 20130419, end: 20130421
  4. WYPAX [Concomitant]
     Active Substance: LORAZEPAM
     Indication: SCHIZOPHRENIA
     Dosage: 1.5 MG, QD
     Route: 048
     Dates: start: 20130606, end: 20130626
  5. WYPAX [Concomitant]
     Active Substance: LORAZEPAM
     Dosage: 0.5 MG, QD
     Route: 048
     Dates: start: 20130704, end: 20130710
  6. CLOZAPINE. [Suspect]
     Active Substance: CLOZAPINE
     Dosage: 50 MG, QD
     Route: 048
     Dates: start: 20130325, end: 20130331
  7. CLOZAPINE. [Suspect]
     Active Substance: CLOZAPINE
     Dosage: 150 MG, QD
     Route: 048
     Dates: start: 20130412, end: 20130414
  8. CLOZAPINE. [Suspect]
     Active Substance: CLOZAPINE
     Dosage: 250 MG, QD
     Route: 048
     Dates: start: 20130426, end: 20130508
  9. OLANZAPINE. [Interacting]
     Active Substance: OLANZAPINE
     Dosage: 7.5 MG, QD
     Route: 048
     Dates: start: 20130408, end: 20130411
  10. CLOZAPINE. [Suspect]
     Active Substance: CLOZAPINE
     Indication: SCHIZOPHRENIA
     Dosage: 25 MG, QD
     Route: 048
     Dates: start: 20130322, end: 20130324
  11. CLOZAPINE. [Suspect]
     Active Substance: CLOZAPINE
     Dosage: 125 MG, QD
     Route: 048
     Dates: start: 20130408, end: 20130411
  12. OLANZAPINE. [Interacting]
     Active Substance: OLANZAPINE
     Indication: SCHIZOPHRENIA
     Dosage: 20 MG, QD
     Route: 048
     Dates: start: 20130319, end: 20130328
  13. RISPERDAL [Suspect]
     Active Substance: RISPERIDONE
     Indication: SCHIZOPHRENIA
     Dosage: 1 MG, QD
     Route: 048
     Dates: start: 20130319, end: 20130619
  14. MYSLEE [Concomitant]
     Active Substance: ZOLPIDEM TARTRATE
     Indication: SCHIZOPHRENIA
     Dosage: 5 MG, QD
     Route: 048
     Dates: start: 20130522
  15. CLOZAPINE. [Suspect]
     Active Substance: CLOZAPINE
     Indication: SCHIZOPHRENIA
     Dosage: 12.5 MG, QD
     Route: 048
     Dates: start: 20130319, end: 20130321
  16. CLOZAPINE. [Suspect]
     Active Substance: CLOZAPINE
     Dosage: 75 MG, QD
     Route: 048
     Dates: start: 20130401, end: 20130404
  17. CLOZAPINE. [Suspect]
     Active Substance: CLOZAPINE
     Dosage: 225 MG, QD
     Route: 048
     Dates: start: 20130422, end: 20130425
  18. QUETIAPINE. [Concomitant]
     Active Substance: QUETIAPINE
     Indication: SCHIZOPHRENIA
     Dosage: 200 MG, QD
     Route: 048
     Dates: start: 20130319, end: 20130416
  19. MEIACT [Concomitant]
     Active Substance: CEFDITOREN PIVOXIL
     Indication: SCHIZOPHRENIA
     Dosage: 300 MG, QD
     Route: 048
     Dates: start: 20130410, end: 20130414
  20. CLOZAPINE. [Suspect]
     Active Substance: CLOZAPINE
     Dosage: 100 MG, QD
     Route: 048
     Dates: start: 20130405, end: 20130407
  21. CLOZAPINE. [Suspect]
     Active Substance: CLOZAPINE
     Dosage: 200 MG, QD
     Route: 048
     Dates: start: 20130417, end: 20130421
  22. CLOZAPINE. [Suspect]
     Active Substance: CLOZAPINE
     Dosage: 275 MG, QD
     Route: 048
     Dates: start: 20130509, end: 20130515
  23. CLOZAPINE. [Suspect]
     Active Substance: CLOZAPINE
     Dosage: 300 MG, QD
     Route: 048
     Dates: start: 20130516, end: 20130529
  24. CLOZAPINE. [Suspect]
     Active Substance: CLOZAPINE
     Dosage: UNK, QD
     Route: 048
  25. MAGMITT [Concomitant]
     Active Substance: MAGNESIUM OXIDE
     Indication: SCHIZOPHRENIA
     Dosage: 1980 MG, QD
     Route: 048
     Dates: start: 20130318
  26. NASIROBIN [Concomitant]
     Indication: SCHIZOPHRENIA
     Dosage: 10 MG, QD
     Route: 048
     Dates: start: 20130322
  27. HORIZON [Concomitant]
     Active Substance: DIAZEPAM
     Dosage: 10 MG, QD
     Route: 048
     Dates: start: 20131114, end: 20140319
  28. CLOZAPINE. [Suspect]
     Active Substance: CLOZAPINE
     Dosage: 350 MG, QD
     Route: 048
     Dates: start: 20130530, end: 20130606
  29. CLOZAPINE. [Suspect]
     Active Substance: CLOZAPINE
     Dosage: 400 MG, QD
     Route: 048
     Dates: start: 20130607, end: 20130619
  30. OLANZAPINE. [Interacting]
     Active Substance: OLANZAPINE
     Dosage: 8 MG, QD
     Route: 048
     Dates: start: 20130412, end: 20130414
  31. ROHYPNOL [Concomitant]
     Active Substance: FLUNITRAZEPAM
     Indication: SCHIZOPHRENIA
     Dosage: 2 MG, QD
     Route: 048
     Dates: end: 20130425
  32. HORIZON [Concomitant]
     Active Substance: DIAZEPAM
     Indication: SCHIZOPHRENIA
     Dosage: 10 MG, QD
     Route: 048
     Dates: start: 20130529, end: 20130609
  33. KAKKONTO                           /07985901/ [Concomitant]
     Indication: PROPHYLAXIS
     Dosage: 7500 MG, QD
     Route: 048
     Dates: start: 20130413, end: 20130415
  34. CLOZAPINE. [Suspect]
     Active Substance: CLOZAPINE
     Dosage: 175 MG, QD
     Route: 048
     Dates: start: 20130415, end: 20130416
  35. OLANZAPINE. [Interacting]
     Active Substance: OLANZAPINE
     Dosage: 15 MG, QD
     Route: 048
     Dates: start: 20130329, end: 20130331
  36. OLANZAPINE. [Interacting]
     Active Substance: OLANZAPINE
     Dosage: 12.5 MG, QD
     Route: 048
     Dates: start: 20130401, end: 20130404
  37. OLANZAPINE. [Interacting]
     Active Substance: OLANZAPINE
     Dosage: 10 MG, QD
     Route: 048
     Dates: start: 20130405, end: 20130407
  38. ROHYPNOL [Concomitant]
     Active Substance: FLUNITRAZEPAM
     Dosage: 1 MG, QD
     Route: 048
     Dates: start: 20130426, end: 20131225
  39. WYPAX [Concomitant]
     Active Substance: LORAZEPAM
     Dosage: 1 MG, QD
     Route: 048
     Dates: start: 20130627, end: 20130703
  40. CLOZAPINE. [Suspect]
     Active Substance: CLOZAPINE
     Dosage: 450 MG, QD
     Route: 048
     Dates: start: 20130620, end: 20130807
  41. GOODMIN [Concomitant]
     Active Substance: BROTIZOLAM
     Indication: SCHIZOPHRENIA
     Dosage: 0.25 MG, QD
     Route: 048
     Dates: end: 20130619
  42. WYPAX [Concomitant]
     Active Substance: LORAZEPAM
     Dosage: 1 MG, QD
     Route: 048
     Dates: start: 20130904
  43. LENDORMIN [Concomitant]
     Active Substance: BROTIZOLAM
     Indication: SCHIZOPHRENIA
     Dosage: 0.25 MG, QD
     Route: 048
     Dates: start: 20130624
  44. HORIZON [Concomitant]
     Active Substance: DIAZEPAM
     Dosage: 5 MG, QD
     Route: 048
     Dates: start: 20140220, end: 20140806

REACTIONS (24)
  - Generalised tonic-clonic seizure [Recovering/Resolving]
  - Heart rate increased [Recovering/Resolving]
  - Constipation [Recovered/Resolved]
  - Eosinophil count decreased [Unknown]
  - Blood glucose increased [Unknown]
  - Blood prolactin increased [Unknown]
  - Salivary hypersecretion [Recovering/Resolving]
  - Depressed level of consciousness [Recovered/Resolved]
  - Seizure [Not Recovered/Not Resolved]
  - Somnolence [Recovered/Resolved]
  - Blood pressure decreased [Unknown]
  - Lymphocyte count decreased [Recovered/Resolved]
  - Moaning [Unknown]
  - Gastritis [Recovered/Resolved]
  - Abdominal pain [Unknown]
  - Pyrexia [Unknown]
  - Appendicitis [Recovered/Resolved]
  - Menstruation irregular [Unknown]
  - Tongue biting [Unknown]
  - Faeces soft [Recovered/Resolved]
  - Dysmenorrhoea [Not Recovered/Not Resolved]
  - White blood cell count increased [Recovered/Resolved]
  - Basophil count increased [Unknown]
  - Neutrophil count increased [Recovered/Resolved]

NARRATIVE: CASE EVENT DATE: 20130323
